FAERS Safety Report 8373282-1 (Version None)
Quarter: 2012Q2

REPORT INFORMATION
  Report Type: 
  Country: None (occurrence: None)
  Receive Date: 20120521
  Receipt Date: 20110615
  Transmission Date: 20120825
  Serious: Yes (Hospitalization)
  Sender: FDA-Public Use
  Company Number: US-TEVA-2011000992

PATIENT
  Sex: Female

DRUGS (9)
  1. ALLOPURINOL [Concomitant]
     Dates: start: 20110118, end: 20110201
  2. RITUXIMAB [Concomitant]
     Indication: CHRONIC LYMPHOCYTIC LEUKAEMIA
     Route: 042
     Dates: start: 20110118, end: 20110118
  3. ABT-263 (NAVITOCLAX) [Concomitant]
     Indication: CHRONIC LYMPHOCYTIC LEUKAEMIA
     Route: 048
     Dates: start: 20110120, end: 20110120
  4. ONDANSETRON [Concomitant]
     Dates: start: 20110118, end: 20110207
  5. FLUTICASONE FUROATE [Concomitant]
     Dates: start: 20100501
  6. BENDAMUSTINE HYDROCHLORIDE [Suspect]
     Indication: CHRONIC LYMPHOCYTIC LEUKAEMIA
     Route: 042
     Dates: start: 20110119, end: 20110120
  7. ESCITALOPRAM [Concomitant]
     Dates: start: 20100501
  8. PROCHLORPERAZINE [Concomitant]
     Dates: start: 20110120, end: 20110201
  9. MEPERIDINE HCL [Concomitant]
     Dates: start: 20110118, end: 20110118

REACTIONS (2)
  - RASH [None]
  - HEADACHE [None]
